FAERS Safety Report 9701190 (Version 1)
Quarter: 2013Q4

REPORT INFORMATION
  Report Type: Spontaneous
  Country: US (occurrence: US)
  Receive Date: 20131121
  Receipt Date: 20131121
  Transmission Date: 20140711
  Serious: No
  Sender: FDA-Public Use
  Company Number: US-GILEAD-2008-0016002

PATIENT
  Sex: Female

DRUGS (12)
  1. LETAIRIS [Suspect]
     Indication: PULMONARY HYPERTENSION
     Route: 048
     Dates: start: 20080404
  2. LETAIRIS [Suspect]
     Route: 048
     Dates: start: 20080123, end: 20080218
  3. VIAGRA [Concomitant]
  4. LASIX [Concomitant]
  5. LANOXIN [Concomitant]
  6. PROMETHAZINE [Concomitant]
  7. KCL [Concomitant]
  8. TYLENOL [Concomitant]
  9. ATIVAN [Concomitant]
  10. ALPHAGAN [Concomitant]
  11. PEPCID [Concomitant]
  12. PEPTO-BISMOL [Concomitant]

REACTIONS (1)
  - Diarrhoea [Not Recovered/Not Resolved]
